FAERS Safety Report 10706635 (Version 1)
Quarter: 2015Q1

REPORT INFORMATION
  Report Type: Spontaneous
  Country: US (occurrence: US)
  Receive Date: 20150113
  Receipt Date: 20150113
  Transmission Date: 20150721
  Serious: Yes (Death, Other)
  Sender: FDA-Public Use
  Company Number: US-SA-2015SA002480

PATIENT
  Age: 48 Year
  Sex: Male

DRUGS (1)
  1. FABRAZYME [Suspect]
     Active Substance: AGALSIDASE BETA
     Indication: FABRY^S DISEASE
     Route: 042

REACTIONS (5)
  - Sepsis [Fatal]
  - Nephropathy [Not Recovered/Not Resolved]
  - Infection [Fatal]
  - Abdominal pain upper [Unknown]
  - Blood pressure abnormal [Not Recovered/Not Resolved]
